FAERS Safety Report 4286598-5 (Version None)
Quarter: 2004Q1

REPORT INFORMATION
  Report Type: 
  Country: None (occurrence: None)
  Receive Date: 20040205
  Receipt Date: 20040205
  Transmission Date: 20041129
  Serious: Yes (Hospitalization)
  Sender: FDA-Public Use
  Company Number: None

PATIENT
  Age: 65 Year
  Sex: Male
  Weight: 60.5 kg

DRUGS (7)
  1. TAXOL [Suspect]
     Indication: LARYNGEAL CANCER
     Dosage: 165 MG IV
     Dates: start: 20031209, end: 20040113
  2. CARBOPLATIN [Suspect]
     Dosage: 165 MG IV
     Route: 042
  3. IFOSFAMIDE [Suspect]
     Dosage: 1640 MG
  4. MESNA [Suspect]
     Dosage: 1640 MG
  5. VICODIN [Concomitant]
  6. PROCRIT [Concomitant]
  7. DECADRON [Concomitant]

REACTIONS (4)
  - ANAEMIA [None]
  - COUGH [None]
  - FATIGUE [None]
  - FEBRILE NEUTROPENIA [None]
